FAERS Safety Report 13702611 (Version 1)
Quarter: 2017Q2

REPORT INFORMATION
  Report Type: Report from Study
  Country: GB (occurrence: GB)
  Receive Date: 20170629
  Receipt Date: 20170629
  Transmission Date: 20170830
  Serious: Yes (Death)
  Sender: FDA-Public Use
  Company Number: PHFR2017GB005091

PATIENT
  Sex: Female

DRUGS (3)
  1. TOBI [Suspect]
     Active Substance: TOBRAMYCIN
     Indication: CYSTIC FIBROSIS
     Dosage: 112 MG, BID (28 DAY CYCLE)
     Route: 065
     Dates: start: 201508, end: 201706
  2. COLOMYCIN [Suspect]
     Active Substance: COLISTIN
     Indication: CYSTIC FIBROSIS
     Dosage: 2 MU, BID (28 DAY CYCLE)
     Route: 065
     Dates: start: 201508, end: 201706
  3. PULMOZYME [Suspect]
     Active Substance: DORNASE ALFA
     Indication: CYSTIC FIBROSIS
     Dosage: 2.5 MG, QD
     Route: 065
     Dates: start: 201508, end: 201706

REACTIONS (1)
  - Death [Fatal]
